FAERS Safety Report 5646133-3 (Version None)
Quarter: 2008Q1

REPORT INFORMATION
  Report Type: 
  Country: None (occurrence: None)
  Receive Date: 20080227
  Receipt Date: 20080215
  Transmission Date: 20080703
  Serious: Yes (Hospitalization)
  Sender: FDA-Public Use
  Company Number: B0509262A

PATIENT
  Age: 30 Year
  Sex: Female

DRUGS (3)
  1. LAMICTAL [Suspect]
     Indication: DRUG USE FOR UNKNOWN INDICATION
     Dates: start: 20070701
  2. VENLAFAXINE HYDROCHLORIDE [Concomitant]
  3. ZOPICLONE [Concomitant]

REACTIONS (9)
  - CONDITION AGGRAVATED [None]
  - DEPRESSION [None]
  - DISTURBANCE IN ATTENTION [None]
  - FATIGUE [None]
  - FEELING COLD [None]
  - PANIC ATTACK [None]
  - RASH PRURITIC [None]
  - SUICIDAL IDEATION [None]
  - THINKING ABNORMAL [None]
